FAERS Safety Report 8078853-8 (Version None)
Quarter: 2012Q1

REPORT INFORMATION
  Report Type: 
  Country: None (occurrence: None)
  Receive Date: 20120127
  Receipt Date: 20110127
  Transmission Date: 20120608
  Serious: No
  Sender: FDA-Public Use
  Company Number: US-ABBOTT-11P-163-0699835-00

PATIENT
  Sex: Female
  Weight: 77.18 kg

DRUGS (13)
  1. PREDNISONE TAB [Concomitant]
     Indication: PSORIATIC ARTHROPATHY
  2. VITAMIN B-12 [Concomitant]
     Indication: VITAMIN SUPPLEMENTATION
  3. PREDNISONE TAB [Concomitant]
     Indication: PSORIASIS
  4. ZETIA [Concomitant]
     Indication: BLOOD CHOLESTEROL INCREASED
  5. FOLIC ACID [Concomitant]
     Indication: VITAMIN SUPPLEMENTATION
  6. HUMIRA [Suspect]
     Indication: PSORIASIS
     Dates: start: 20101101, end: 20101101
  7. METHOTREXATE [Concomitant]
     Indication: PSORIASIS
  8. METHOTREXATE [Concomitant]
     Indication: PSORIATIC ARTHROPATHY
  9. LEVOTHYROXINE SODIUM [Concomitant]
     Indication: HYPOTHYROIDISM
  10. VITAMIN D [Concomitant]
     Indication: VITAMIN SUPPLEMENTATION
  11. INDOMETHACIN [Concomitant]
     Indication: PSORIATIC ARTHROPATHY
  12. HUMIRA [Suspect]
     Indication: PSORIATIC ARTHROPATHY
     Dates: start: 20110114
  13. ENJUVIA [Concomitant]
     Indication: HORMONE REPLACEMENT THERAPY

REACTIONS (4)
  - SINUSITIS [None]
  - RESPIRATORY TRACT CONGESTION [None]
  - EAR PAIN [None]
  - EAR INFECTION [None]
